FAERS Safety Report 4882548-9 (Version None)
Quarter: 2006Q1

REPORT INFORMATION
  Report Type: 
  Country: None (occurrence: None)
  Receive Date: 20060113
  Receipt Date: 20060105
  Transmission Date: 20060701
  Serious: Yes (Death)
  Sender: FDA-Public Use
  Company Number: RS005713-USA

PATIENT
  Age: 79 Year
  Sex: Female
  Weight: 79 kg

DRUGS (6)
  1. ACIPHEX [Suspect]
     Dosage: ORAL
     Route: 048
  2. NEURONTIN [Concomitant]
  3. MOBIC [Concomitant]
  4. DIGOXIN [Concomitant]
  5. ULTRAM [Concomitant]
  6. TOPAMAX [Concomitant]

REACTIONS (6)
  - BRONCHITIS [None]
  - BRONCHOPNEUMONIA [None]
  - CORONARY ARTERY DISEASE [None]
  - DECUBITUS ULCER [None]
  - DIABETES MELLITUS [None]
  - FOOT FRACTURE [None]
